FAERS Safety Report 15089393 (Version 3)
Quarter: 2018Q3

REPORT INFORMATION
  Report Type: Spontaneous
  Country: US (occurrence: US)
  Receive Date: 20180629
  Receipt Date: 20180720
  Transmission Date: 20181010
  Serious: Yes (Other)
  Sender: FDA-Public Use
  Company Number: US-BIOGEN-2015BI118780

PATIENT
  Age: 61 Year
  Sex: Female

DRUGS (3)
  1. TECFIDERA [Suspect]
     Active Substance: DIMETHYL FUMARATE
     Indication: MULTIPLE SCLEROSIS
     Dosage: STARTING DOSE
     Route: 048
     Dates: start: 201310
  2. TECFIDERA [Suspect]
     Active Substance: DIMETHYL FUMARATE
     Dosage: MAINTENANCE DOSE
     Route: 048
     Dates: start: 201505, end: 20150704
  3. TECFIDERA [Suspect]
     Active Substance: DIMETHYL FUMARATE
     Dosage: MAINTENANCE DOSE
     Route: 048
     Dates: start: 20131203

REACTIONS (12)
  - Lymphocyte count decreased [Not Recovered/Not Resolved]
  - Arthralgia [Recovered/Resolved]
  - Hypoaesthesia [Not Recovered/Not Resolved]
  - Injection site reaction [Not Recovered/Not Resolved]
  - Lupus-like syndrome [Recovered/Resolved]
  - Limb discomfort [Not Recovered/Not Resolved]
  - Joint swelling [Recovered/Resolved]
  - Gait disturbance [Not Recovered/Not Resolved]
  - Peripheral swelling [Recovered/Resolved]
  - Multiple sclerosis relapse [Recovered/Resolved]
  - Immune system disorder [Unknown]
  - Mobility decreased [Unknown]

NARRATIVE: CASE EVENT DATE: 20150609
